FAERS Safety Report 10197244 (Version 1)
Quarter: 2014Q2

REPORT INFORMATION
  Report Type: Spontaneous
  Country: BR (occurrence: BR)
  Receive Date: 20140527
  Receipt Date: 20140527
  Transmission Date: 20141212
  Serious: Yes (Hospitalization)
  Sender: FDA-Public Use
  Company Number: BR-GLAXOSMITHKLINE-A1074599A

PATIENT
  Age: 73 Year
  Sex: Female
  Weight: 89 kg

DRUGS (8)
  1. SERETIDE [Suspect]
     Indication: ASTHMA
     Dosage: 2PUFF TWICE PER DAY
     Route: 055
     Dates: start: 2012
  2. ENALAPRIL [Concomitant]
  3. SIMVASTATIN [Concomitant]
  4. CARDIZEM [Concomitant]
  5. ASPIRIN [Concomitant]
  6. TRAMADOL HYDROCHLORIDE [Concomitant]
  7. ISORDIL [Concomitant]
  8. PANTOPRAZOLE [Concomitant]

REACTIONS (4)
  - Gastric infection [Recovered/Resolved]
  - Haematemesis [Unknown]
  - Diarrhoea [Unknown]
  - Vascular rupture [Unknown]
